FAERS Safety Report 7513971-1 (Version None)
Quarter: 2011Q2

REPORT INFORMATION
  Report Type: 
  Country: None (occurrence: None)
  Receive Date: 20110531
  Receipt Date: 20110418
  Transmission Date: 20111010
  Serious: Yes (Other)
  Sender: FDA-Public Use
  Company Number: US-BAYER-201029711NA

PATIENT
  Age: 21 Year
  Sex: Female
  Weight: 63.492 kg

DRUGS (4)
  1. CELEBREX [Concomitant]
     Dosage: 200 MG, UNK
  2. YASMIN [Suspect]
     Indication: CONTRACEPTION
     Dosage: UNK
     Route: 048
     Dates: start: 20070213, end: 20081001
  3. PROTONIX [Concomitant]
     Dosage: UNK
     Dates: start: 20070826
  4. DICYCLOMINE [Concomitant]
     Dosage: 10 MG, UNK
     Dates: start: 20070720

REACTIONS (2)
  - GALLBLADDER DISORDER [None]
  - CHOLECYSTITIS CHRONIC [None]
